FAERS Safety Report 6279289-2 (Version None)
Quarter: 2009Q3

REPORT INFORMATION
  Report Type: 
  Country: None (occurrence: None)
  Receive Date: 20090723
  Receipt Date: 20081030
  Transmission Date: 20100115
  Serious: No
  Sender: FDA-Public Use
  Company Number: US-AMGEN-KDL293623

PATIENT
  Sex: Female
  Weight: 65.8 kg

DRUGS (12)
  1. PROCRIT [Suspect]
     Indication: RENAL FAILURE CHRONIC
     Route: 058
     Dates: start: 20070101
  2. LEXAPRO [Suspect]
  3. LIPITOR [Concomitant]
  4. LASIX [Concomitant]
     Route: 048
  5. UNSPECIFIED ANTIHYPERTENSIVE AGENT [Concomitant]
  6. AGRYLIN [Concomitant]
  7. ASPIRIN [Concomitant]
  8. CATAPRES [Concomitant]
  9. PLAVIX [Concomitant]
  10. ANTIVERT [Concomitant]
  11. NITROGLYCERIN [Concomitant]
  12. CLONIDINE [Concomitant]
     Route: 048

REACTIONS (5)
  - DYSPNOEA [None]
  - FATIGUE [None]
  - FEELING ABNORMAL [None]
  - HAEMOGLOBIN DECREASED [None]
  - RASH [None]
